FAERS Safety Report 5742398-8 (Version None)
Quarter: 2008Q2

REPORT INFORMATION
  Report Type: 
  Country: None (occurrence: None)
  Receive Date: 20080519
  Receipt Date: 20080505
  Transmission Date: 20081010
  Serious: Yes (Hospitalization)
  Sender: FDA-Public Use
  Company Number: US-ELI_LILLY_AND_COMPANY-US200805000585

PATIENT
  Sex: Female

DRUGS (1)
  1. FORTEO [Suspect]
     Indication: OSTEOPOROSIS
     Dates: start: 20060601, end: 20080423

REACTIONS (5)
  - ATRIAL FIBRILLATION [None]
  - FALL [None]
  - HYPERTENSION [None]
  - PELVIC FRACTURE [None]
  - UPPER LIMB FRACTURE [None]
